FAERS Safety Report 5368234-X (Version None)
Quarter: 2007Q2

REPORT INFORMATION
  Report Type: 
  Country: None (occurrence: None)
  Receive Date: 20070622
  Receipt Date: 20070622
  Transmission Date: 20071010
  Serious: Yes (Other)
  Sender: FDA-Public Use
  Company Number: None

PATIENT
  Age: 17 Year
  Sex: Female
  Weight: 69.7 kg

DRUGS (1)
  1. MIDODRINE HYDROCHLORIDE [Suspect]
     Indication: SYNCOPE VASOVAGAL
     Dosage: 4 OR 5 DOSES PO
     Route: 048
     Dates: start: 20060501, end: 20070501

REACTIONS (4)
  - ABDOMINAL PAIN [None]
  - ERYTHEMA [None]
  - SKIN EXFOLIATION [None]
  - STOMACH DISCOMFORT [None]
